FAERS Safety Report 21300849 (Version 1)
Quarter: 2022Q3

REPORT INFORMATION
  Report Type: Spontaneous
  Country: PT (occurrence: PT)
  Receive Date: 20220907
  Receipt Date: 20220907
  Transmission Date: 20221026
  Serious: Yes (Other)
  Sender: FDA-Public Use
  Company Number: None

PATIENT
  Age: 80 Year
  Sex: Male
  Weight: 75 kg

DRUGS (7)
  1. BICALUTAMIDE [Suspect]
     Active Substance: BICALUTAMIDE
     Indication: Prostate cancer
     Dosage: 1 ID ,  UNIT DOSE : 50 MG ,  DURATION  : 19 WEEKS, ADDITIONAL INFO : PRESCRIBED IN UROLOGY CONSULTAT
     Route: 065
     Dates: start: 20220301, end: 20220720
  2. FUROSEMIDE [Concomitant]
     Active Substance: FUROSEMIDE
     Indication: Product used for unknown indication
     Dosage: UNIT DOSE :  40 MG
  3. Beta-histine [Concomitant]
     Indication: Product used for unknown indication
  4. Amlodipin + Olmesartan medoxomil [Concomitant]
     Indication: Product used for unknown indication
  5. ELIGARD [Concomitant]
     Active Substance: LEUPROLIDE ACETATE
     Indication: Prostate cancer
  6. Timolol + Dorzolamid [Concomitant]
     Indication: Product used for unknown indication
  7. ATORVASTATIN [Concomitant]
     Active Substance: ATORVASTATIN
     Indication: Product used for unknown indication

REACTIONS (3)
  - Fear of death [Unknown]
  - Affect lability [Unknown]
  - Decreased appetite [Unknown]

NARRATIVE: CASE EVENT DATE: 20220601
